FAERS Safety Report 5788093-0 (Version None)
Quarter: 2008Q2

REPORT INFORMATION
  Report Type: 
  Country: None (occurrence: None)
  Receive Date: 20080625
  Receipt Date: 20080611
  Transmission Date: 20081010
  Serious: Yes (Hospitalization)
  Sender: FDA-Public Use
  Company Number: IT-ELI_LILLY_AND_COMPANY-IT200806002647

PATIENT
  Sex: Female

DRUGS (10)
  1. BYETTA [Suspect]
     Indication: TYPE 2 DIABETES MELLITUS
     Dosage: 10 UG, UNKNOWN
     Route: 058
     Dates: start: 20080410, end: 20080520
  2. CARDURA [Concomitant]
     Dosage: 2 MG, UNKNOWN
     Route: 048
  3. VALSARTAN AND HYDROCHLOROTHIAZIDE [Concomitant]
     Dosage: UNK, UNKNOWN
     Route: 065
  4. CATAPRESAN                              /GFR/ [Concomitant]
     Dosage: 15 UG, UNKNOWN
     Route: 048
  5. ALLOPURINOL [Concomitant]
     Dosage: 100 MG, UNKNOWN
     Route: 048
  6. SIVASTIN [Concomitant]
     Dosage: 10 MG, UNKNOWN
     Route: 048
  7. GLUCOPHAGE [Concomitant]
     Dosage: 1000 MG, UNKNOWN
     Route: 048
  8. ASPIRIN [Concomitant]
     Dosage: 100 MG, UNKNOWN
     Route: 048
  9. LOBIVON [Concomitant]
     Dosage: 5 MG, UNKNOWN
     Route: 048
  10. LASIX [Concomitant]
     Dosage: 25 MG, UNKNOWN
     Route: 048

REACTIONS (1)
  - ATRIAL FIBRILLATION [None]
